FAERS Safety Report 17209109 (Version 1)
Quarter: 2019Q4

REPORT INFORMATION
  Report Type: Spontaneous
  Country: US (occurrence: US)
  Receive Date: 20191227
  Receipt Date: 20191227
  Transmission Date: 20200122
  Serious: Yes (Hospitalization)
  Sender: FDA-Public Use
  Company Number: US-ROCHE-2507824

PATIENT
  Age: 68 Year
  Sex: Male

DRUGS (12)
  1. FAMOTIDINE. [Concomitant]
     Active Substance: FAMOTIDINE
  2. MONTELUKAST [Concomitant]
     Active Substance: MONTELUKAST SODIUM
  3. FLUDROCORTISONE [Concomitant]
     Active Substance: FLUDROCORTISONE
  4. LATANOPROST. [Concomitant]
     Active Substance: LATANOPROST
  5. DULERA [Concomitant]
     Active Substance: FORMOTEROL FUMARATE DIHYDRATE\MOMETASONE FUROATE
  6. ESCITALOPRAM [Concomitant]
     Active Substance: ESCITALOPRAM OXALATE
  7. FLUCONAZOLE. [Concomitant]
     Active Substance: FLUCONAZOLE
  8. LINZESS [Concomitant]
     Active Substance: LINACLOTIDE
  9. ESBRIET [Suspect]
     Active Substance: PIRFENIDONE
     Indication: AUTONOMIC NEUROPATHY
     Dosage: 3 CAPS TID, ONGOING: NO
     Route: 048
  10. MIDODRINE [Concomitant]
     Active Substance: MIDODRINE
  11. PREDNISONE. [Concomitant]
     Active Substance: PREDNISONE
  12. BACLOFEN. [Concomitant]
     Active Substance: BACLOFEN

REACTIONS (4)
  - Pneumonia [Unknown]
  - Cystic fibrosis [Unknown]
  - Intentional product use issue [Unknown]
  - Off label use [Unknown]

NARRATIVE: CASE EVENT DATE: 20191125
